FAERS Safety Report 8617012 (Version 2)
Quarter: 2013Q1

REPORT INFORMATION
  Report Type: Spontaneous
  Country: PT (occurrence: PT)
  Receive Date: 20120615
  Receipt Date: 20130212
  Transmission Date: 20140127
  Serious: Yes (Hospitalization)
  Sender: FDA-Public Use
  Company Number: PT-JNJFOC-20120603093

PATIENT
  Age: 51 Year
  Sex: Female

DRUGS (5)
  1. INFLIXIMAB, RECOMBINANT [Suspect]
     Indication: COLITIS
     Route: 042
  2. INFLIXIMAB, RECOMBINANT [Suspect]
     Indication: COLITIS
     Route: 042
  3. INFLIXIMAB, RECOMBINANT [Suspect]
     Indication: CROHN^S DISEASE
     Route: 042
  4. INFLIXIMAB, RECOMBINANT [Suspect]
     Indication: CROHN^S DISEASE
     Route: 042
  5. 5-ASA [Concomitant]
     Indication: COLITIS ULCERATIVE
     Route: 065

REACTIONS (6)
  - Meningitis listeria [Recovered/Resolved]
  - Pyrexia [Recovered/Resolved]
  - Proctalgia [Recovered/Resolved]
  - Abdominal pain [Unknown]
  - Diarrhoea haemorrhagic [Unknown]
  - Nausea [Unknown]
